FAERS Safety Report 10161322 (Version 4)
Quarter: 2014Q2

REPORT INFORMATION
  Report Type: Spontaneous
  Country: US (occurrence: US)
  Receive Date: 20140509
  Receipt Date: 20140527
  Transmission Date: 20141212
  Serious: Yes (Hospitalization, Other)
  Sender: FDA-Public Use
  Company Number: US-UCBSA-120174

PATIENT
  Sex: Female
  Weight: 89.54 kg

DRUGS (4)
  1. KEPPRA [Suspect]
     Indication: CONVULSION
     Dosage: TAKING FOR QUITE SOME TIME
     Route: 048
  2. MELOXICAM [Concomitant]
     Indication: ARTHRITIS
     Route: 048
     Dates: start: 201404
  3. CARVEDILOL [Concomitant]
     Indication: BLOOD PRESSURE
     Route: 048
     Dates: start: 201404
  4. LISINOPRIL [Concomitant]
     Indication: BLOOD PRESSURE
     Dosage: TAKING FROM A LONG WHILE
     Route: 048

REACTIONS (3)
  - Convulsion [Recovered/Resolved]
  - Respiratory disorder [Not Recovered/Not Resolved]
  - Petit mal epilepsy [Unknown]
